FAERS Safety Report 20071755 (Version 2)
Quarter: 2021Q4

REPORT INFORMATION
  Report Type: Report from Study
  Country: US (occurrence: US)
  Receive Date: 20211116
  Receipt Date: 20211122
  Transmission Date: 20220303
  Serious: Yes (Hospitalization, Other)
  Sender: FDA-Public Use
  Company Number: US-UCBSA-2021048986

PATIENT
  Sex: Female

DRUGS (3)
  1. CERTOLIZUMAB PEGOL [Suspect]
     Active Substance: CERTOLIZUMAB PEGOL
     Indication: Psoriasis
     Dosage: LOADING DOSE
     Dates: start: 2021, end: 2021
  2. CERTOLIZUMAB PEGOL [Suspect]
     Active Substance: CERTOLIZUMAB PEGOL
     Dosage: 400 MILLIGRAM, WEEKLY (QW)
     Dates: start: 2021, end: 2021
  3. CERTOLIZUMAB PEGOL [Suspect]
     Active Substance: CERTOLIZUMAB PEGOL
     Dosage: 200 MILLIGRAM, WEEKLY (QW)
     Dates: start: 2021, end: 2021

REACTIONS (5)
  - Urinary tract infection [Recovering/Resolving]
  - Sepsis [Recovering/Resolving]
  - Psoriasis [Not Recovered/Not Resolved]
  - Off label use [Unknown]
  - Infection [Not Recovered/Not Resolved]
